FAERS Safety Report 5723474-2 (Version None)
Quarter: 2008Q2

REPORT INFORMATION
  Report Type: 
  Country: None (occurrence: None)
  Receive Date: 20080425
  Receipt Date: 20080331
  Transmission Date: 20081010
  Serious: Yes (Hospitalization)
  Sender: FDA-Public Use
  Company Number: 2008S1005365

PATIENT
  Age: 33 Year
  Sex: Male

DRUGS (4)
  1. TRAMADOL HCL [Suspect]
     Indication: OVERDOSE
  2. HYDROXYZINE [Concomitant]
  3. GABAPENTIN [Concomitant]
  4. CLONAZEPAM (CLONAZEPAM0 [Concomitant]

REACTIONS (15)
  - BLOOD CREATINE PHOSPHOKINASE INCREASED [None]
  - BLOOD GLUCOSE INCREASED [None]
  - BLOOD LACTIC ACID INCREASED [None]
  - BUNDLE BRANCH BLOCK RIGHT [None]
  - CARDIAC ARREST [None]
  - COMA [None]
  - CONTINUOUS HAEMODIAFILTRATION [None]
  - CONVULSION [None]
  - GENERAL PHYSICAL HEALTH DETERIORATION [None]
  - HAEMOGLOBIN DECREASED [None]
  - MYOGLOBIN BLOOD INCREASED [None]
  - OVERDOSE [None]
  - RENAL FAILURE ACUTE [None]
  - SHOCK [None]
  - VENTRICULAR TACHYCARDIA [None]
